FAERS Safety Report 7815564-5 (Version None)
Quarter: 2011Q4

REPORT INFORMATION
  Report Type: 
  Country: None (occurrence: None)
  Receive Date: 20111014
  Receipt Date: 20111010
  Transmission Date: 20120403
  Serious: Yes (Other)
  Sender: FDA-Public Use
  Company Number: US-ABBOTT-11P-163-0848002-00

PATIENT
  Sex: Female

DRUGS (14)
  1. CALCIUM CARBONATE [Concomitant]
     Indication: PRODUCT USED FOR UNKNOWN INDICATION
  2. VICODIN [Concomitant]
     Indication: ARTHRALGIA
     Dosage: 10/660 MG
  3. ROBAXIN [Concomitant]
     Indication: MUSCLE SPASMS
  4. FOLIC ACID [Concomitant]
     Indication: PRODUCT USED FOR UNKNOWN INDICATION
  5. BACLOFEN [Concomitant]
     Indication: MUSCLE SPASMS
  6. LISINOPRIL [Concomitant]
     Indication: PRODUCT USED FOR UNKNOWN INDICATION
  7. VITAMIN D [Concomitant]
     Indication: PRODUCT USED FOR UNKNOWN INDICATION
  8. HUMIRA [Suspect]
     Indication: RHEUMATOID ARTHRITIS
     Route: 058
     Dates: start: 20070101, end: 20110101
  9. HUMIRA [Suspect]
     Dates: start: 20110101, end: 20110601
  10. SIMVASTATIN [Concomitant]
     Indication: PRODUCT USED FOR UNKNOWN INDICATION
  11. ASPIRIN [Concomitant]
     Indication: PRODUCT USED FOR UNKNOWN INDICATION
  12. ARAVA [Concomitant]
     Indication: PRODUCT USED FOR UNKNOWN INDICATION
  13. METFORMIN HYDROCHLORIDE [Concomitant]
     Indication: PRODUCT USED FOR UNKNOWN INDICATION
  14. VICODIN [Concomitant]
     Indication: FIBROMYALGIA

REACTIONS (9)
  - RHEUMATOID ARTHRITIS [None]
  - PAIN IN EXTREMITY [None]
  - PAIN [None]
  - CYST [None]
  - BLEPHAROPLASTY [None]
  - MYALGIA [None]
  - ABSCESS LIMB [None]
  - CATARACT OPERATION [None]
  - MASS [None]
